FAERS Safety Report 6148355-4 (Version None)
Quarter: 2009Q2

REPORT INFORMATION
  Report Type: 
  Country: None (occurrence: None)
  Receive Date: 20090408
  Receipt Date: 20090401
  Transmission Date: 20091009
  Serious: Yes (Hospitalization)
  Sender: FDA-Public Use
  Company Number: US-JNJFOC-20090401436

PATIENT
  Sex: Female
  Weight: 30.3 kg

DRUGS (4)
  1. INFLIXIMAB [Suspect]
     Indication: CROHN'S DISEASE
     Route: 042
  2. ADALIMUMAB [Concomitant]
  3. ADALIMUMAB [Concomitant]
     Indication: CROHN'S DISEASE
  4. TACROLIMUS [Concomitant]
     Indication: CROHN'S DISEASE

REACTIONS (1)
  - CONSTIPATION [None]
